FAERS Safety Report 5786272-X (Version None)
Quarter: 2008Q2

REPORT INFORMATION
  Report Type: 
  Country: None (occurrence: None)
  Receive Date: 20080618
  Receipt Date: 20080604
  Transmission Date: 20081010
  Serious: Yes (Hospitalization)
  Sender: FDA-Public Use
  Company Number: FR-1166263

PATIENT
  Age: 3 Year
  Sex: Female

DRUGS (1)
  1. ATROPINE SULFATE [Suspect]
     Dosage: 1 GTT OU BID OPHTHALMIC
     Route: 047
     Dates: start: 20080510, end: 20080516

REACTIONS (3)
  - HALLUCINATION [None]
  - MYDRIASIS [None]
  - SYNCOPE [None]
